FAERS Safety Report 16049878 (Version 2)
Quarter: 2019Q1

REPORT INFORMATION
  Report Type: Report from Study
  Country: CA (occurrence: CA)
  Receive Date: 20190308
  Receipt Date: 20190314
  Transmission Date: 20190418
  Serious: Yes (Disabling, Other)
  Sender: FDA-Public Use
  Company Number: CA-EMD SERONO-9075347

PATIENT
  Sex: Male

DRUGS (2)
  1. REBIF [Suspect]
     Active Substance: INTERFERON BETA-1A
     Indication: MULTIPLE SCLEROSIS
     Dosage: 44 NF MCG/3-PK
     Route: 058
     Dates: start: 20000301
  2. TETRACYCLINE [Suspect]
     Active Substance: TETRACYCLINE
     Indication: PRODUCT USED FOR UNKNOWN INDICATION

REACTIONS (9)
  - Multiple sclerosis relapse [Unknown]
  - Injection site reaction [Unknown]
  - Physical disability [Unknown]
  - Ill-defined disorder [Unknown]
  - Injection site infection [Unknown]
  - Liver function test abnormal [Unknown]
  - Hepatic steatosis [Unknown]
  - Injection site scar [Unknown]
  - Injection site swelling [Unknown]
